FAERS Safety Report 20289211 (Version 2)
Quarter: 2022Q1

REPORT INFORMATION
  Report Type: Report from Study
  Country: CN (occurrence: None)
  Receive Date: 20220104
  Receipt Date: 20220203
  Transmission Date: 20220423
  Serious: Yes (Hospitalization)
  Sender: FDA-Public Use
  Company Number: CN-ROCHE-2992710

PATIENT
  Age: 70 Year
  Sex: Male
  Weight: 73 kg

DRUGS (4)
  1. ATEZOLIZUMAB [Suspect]
     Active Substance: ATEZOLIZUMAB
     Indication: Non-small cell lung cancer stage IV
     Route: 041
     Dates: start: 20210930
  2. BEVACIZUMAB [Suspect]
     Active Substance: BEVACIZUMAB
     Indication: Non-small cell lung cancer stage IV
     Dosage: DATE OF MOST RECENT DOSE OF BEVACIZUMAB 1080MG PRIOR TO AE AND SAE : 02/DEC/2021
     Route: 042
     Dates: start: 20210930
  3. CARBOPLATIN [Suspect]
     Active Substance: CARBOPLATIN
     Indication: Non-small cell lung cancer stage IV
     Dosage: DATE OF MOST RECENT DOSE OF CARBOPLATIN 550MG PRIROR TO AE : 02/DEC/2021
     Route: 042
     Dates: start: 20210930
  4. PEMETREXED [Suspect]
     Active Substance: PEMETREXED
     Indication: Non-small cell lung cancer stage IV
     Dosage: DATE OF MOST RECENT DOSE OF PEMETREXED 915MG PRIOR TO AE : 02/DEC/2021
     Route: 042
     Dates: start: 20210930

REACTIONS (1)
  - Arteriosclerosis coronary artery [Recovering/Resolving]

NARRATIVE: CASE EVENT DATE: 20211223
